FAERS Safety Report 13073770 (Version 1)
Quarter: 2016Q4

REPORT INFORMATION
  Report Type: Spontaneous
  Country: GB (occurrence: GB)
  Receive Date: 20161229
  Receipt Date: 20161229
  Transmission Date: 20170207
  Serious: Yes (Other)
  Sender: FDA-Public Use
  Company Number: GB-MYLANLABS-2016M1057647

PATIENT

DRUGS (2)
  1. VENLAFAXINE [Suspect]
     Active Substance: VENLAFAXINE HYDROCHLORIDE
     Indication: TRIGEMINAL NERVE DISORDER
     Dosage: TAKEN FOR SEVERAL YEARS
     Route: 065
  2. VENLAFAXINE [Suspect]
     Active Substance: VENLAFAXINE HYDROCHLORIDE
     Indication: ERYTHROMELALGIA

REACTIONS (8)
  - Haemorrhage [Unknown]
  - Drug ineffective [Unknown]
  - Drug intolerance [Unknown]
  - Intentional product use issue [Unknown]
  - Nightmare [Unknown]
  - Arrhythmia [Unknown]
  - Wrong technique in product usage process [Unknown]
  - Insomnia [Unknown]
